FAERS Safety Report 22379033 (Version 3)
Quarter: 2023Q4

REPORT INFORMATION
  Report Type: Spontaneous
  Country: AR (occurrence: None)
  Receive Date: 20230529
  Receipt Date: 20231102
  Transmission Date: 20240110
  Serious: Yes (Life-Threatening, Hospitalization, Other)
  Sender: FDA-Public Use
  Company Number: AR-Orion Corporation ORION PHARMA-ENTC2023-0116

PATIENT
  Age: 77 Year
  Sex: Female

DRUGS (8)
  1. STALEVO [Suspect]
     Active Substance: CARBIDOPA\ENTACAPONE\LEVODOPA
     Indication: Parkinson^s disease
     Dosage: PER MONTH, A BOTTLE OF 200 MG
  2. STALEVO [Suspect]
     Active Substance: CARBIDOPA\ENTACAPONE\LEVODOPA
     Dates: start: 2008
  3. DONEPEZIL [Concomitant]
     Active Substance: DONEPEZIL
  4. LEVOTHYROXINE [Concomitant]
     Active Substance: LEVOTHYROXINE
  5. QUETIAPINE [Concomitant]
     Active Substance: QUETIAPINE
  6. POLPER B12 [Concomitant]
  7. PAROXETINE [Concomitant]
     Active Substance: PAROXETINE
  8. CLONAZEPAM [Concomitant]
     Active Substance: CLONAZEPAM

REACTIONS (3)
  - Product availability issue [Unknown]
  - Hip fracture [Unknown]
  - Parkinson^s disease [Unknown]
